FAERS Safety Report 24058879 (Version 2)
Quarter: 2025Q3

REPORT INFORMATION
  Report Type: Spontaneous
  Country: GB (occurrence: GB)
  Receive Date: 20240708
  Receipt Date: 20250709
  Transmission Date: 20251021
  Serious: Yes (Life-Threatening)
  Sender: TEVA
  Company Number: None

PATIENT

DRUGS (1)
  1. FINASTERIDE [Suspect]
     Active Substance: FINASTERIDE
     Indication: Product used for unknown indication
     Route: 065

REACTIONS (1)
  - Insomnia [Not Recovered/Not Resolved]

NARRATIVE: CASE EVENT DATE: 20240323
